FAERS Safety Report 25945469 (Version 1)
Quarter: 2025Q4

REPORT INFORMATION
  Report Type: Spontaneous
  Country: US (occurrence: None)
  Receive Date: 20251021
  Receipt Date: 20251021
  Transmission Date: 20260118
  Serious: Yes (Hospitalization, Disabling, Other)
  Sender: FDA-CTU
  Company Number: None

PATIENT
  Age: 70 Year
  Sex: Female
  Weight: 67.95 kg

DRUGS (7)
  1. RISPERIDONE [Suspect]
     Active Substance: RISPERIDONE
     Indication: Schizophrenia
     Dosage: OTHER QUANTITY : 1 INJECTION(S);?OTHER FREQUENCY : UNKNOWN ;?STRENGTH: 25MG/VIAL AND/OR 37.5MG/ VIAL MG MILLIGRAM(S_
     Route: 030
     Dates: start: 20241001, end: 20250407
  2. RISPERIDONE [Suspect]
     Active Substance: RISPERIDONE
     Indication: Dementia
  3. BUSPAR [Suspect]
     Active Substance: BUSPIRONE HYDROCHLORIDE
     Indication: Schizophrenia
     Dosage: OTHER QUANTITY : 1 TABLET(S);?OTHER FREQUENCY : UNKNOWN;?
     Route: 048
     Dates: start: 20240601, end: 20250113
  4. BUSPAR [Suspect]
     Active Substance: BUSPIRONE HYDROCHLORIDE
     Indication: Dementia
  5. VITAMIN D [Concomitant]
     Active Substance: VITAMIN D NOS
  6. IRON [Concomitant]
     Active Substance: IRON
  7. ASPIRIN [Concomitant]
     Active Substance: ASPIRIN

REACTIONS (11)
  - Pneumonia [None]
  - Victim of abuse [None]
  - Near death experience [None]
  - Atypical pneumonia [None]
  - Clostridium difficile infection [None]
  - Brain fog [None]
  - Communication disorder [None]
  - Hypertension [None]
  - Pollakiuria [None]
  - Gout [None]
  - Dementia [None]

NARRATIVE: CASE EVENT DATE: 20250309
